FAERS Safety Report 15607861 (Version 1)
Quarter: 2018Q4

REPORT INFORMATION
  Report Type: Spontaneous
  Country: US (occurrence: US)
  Receive Date: 20181112
  Receipt Date: 20181112
  Transmission Date: 20190205
  Serious: No
  Sender: FDA-Public Use
  Company Number: None

PATIENT
  Age: 6 Month
  Sex: Female
  Weight: 60.3 kg

DRUGS (4)
  1. VITAMIN D3 [Concomitant]
     Active Substance: CHOLECALCIFEROL
  2. LO LOESTRIN FE [Suspect]
     Active Substance: ETHINYL ESTRADIOL\NORETHINDRONE ACETATE
     Indication: MENOPAUSAL SYMPTOMS
     Dosage: ?          QUANTITY:28 TABLET(S);?
     Route: 048
     Dates: start: 20181018, end: 20181109
  3. MAGNESIUM + POTASSIUM ASPARTATE [Concomitant]
  4. NP THYROID [Concomitant]
     Active Substance: LEVOTHYROXINE\LIOTHYRONINE

REACTIONS (11)
  - Mania [None]
  - Fatigue [None]
  - Memory impairment [None]
  - Libido decreased [None]
  - Crying [None]
  - Suicidal ideation [None]
  - Mood swings [None]
  - Depression [None]
  - Breast pain [None]
  - Insomnia [None]
  - Feeling abnormal [None]

NARRATIVE: CASE EVENT DATE: 20181023
